FAERS Safety Report 26109459 (Version 1)
Quarter: 2025Q4

REPORT INFORMATION
  Report Type: Spontaneous
  Country: EU (occurrence: EU)
  Receive Date: 20251201
  Receipt Date: 20251201
  Transmission Date: 20260119
  Serious: Yes (Other)
  Sender: NOVO NORDISK
  Company Number: EU-NOVOPROD-1569853

PATIENT
  Sex: Female

DRUGS (1)
  1. WEGOVY [Suspect]
     Active Substance: SEMAGLUTIDE
     Indication: Product used for unknown indication
     Dosage: 0.25 MG

REACTIONS (3)
  - Visual impairment [Unknown]
  - Optic disc disorder [Unknown]
  - Pathologic myopia [Unknown]
